FAERS Safety Report 11854106 (Version 1)
Quarter: 2015Q4

REPORT INFORMATION
  Report Type: Spontaneous
  Country: GB (occurrence: GB)
  Receive Date: 20151220
  Receipt Date: 20151220
  Transmission Date: 20160305
  Serious: Yes (Hospitalization)
  Sender: FDA-Public Use
  Company Number: GB-DEXPHARM-20152494

PATIENT
  Age: 26 Year
  Sex: Male
  Weight: 83.46 kg

DRUGS (5)
  1. OMEPRAZOLE. [Suspect]
     Active Substance: OMEPRAZOLE
     Indication: GASTRIC ULCER
     Route: 048
     Dates: start: 20151003
  2. ST JOHNS WORT [Concomitant]
     Active Substance: ST. JOHN^S WORT
  3. DIAZEPAM. [Concomitant]
     Active Substance: DIAZEPAM
  4. OMEPRAZOLE. [Suspect]
     Active Substance: OMEPRAZOLE
     Indication: GASTRIC ULCER
     Route: 048
     Dates: end: 20151023
  5. STEMETIL [Concomitant]
     Active Substance: PROCHLORPERAZINE MALEATE

REACTIONS (13)
  - Loss of consciousness [Unknown]
  - Feeling abnormal [Not Recovered/Not Resolved]
  - Disturbance in attention [Not Recovered/Not Resolved]
  - Dissociation [Not Recovered/Not Resolved]
  - Drug withdrawal syndrome [Unknown]
  - Agitation [Not Recovered/Not Resolved]
  - Tunnel vision [Not Recovered/Not Resolved]
  - Depression [Not Recovered/Not Resolved]
  - Vision blurred [Not Recovered/Not Resolved]
  - Confusional state [Not Recovered/Not Resolved]
  - Mental impairment [Not Recovered/Not Resolved]
  - Dizziness [Not Recovered/Not Resolved]
  - Panic attack [Not Recovered/Not Resolved]

NARRATIVE: CASE EVENT DATE: 20151019
